FAERS Safety Report 6585967-8 (Version None)
Quarter: 2010Q1

REPORT INFORMATION
  Report Type: 
  Country: None (occurrence: None)
  Receive Date: 20100216
  Receipt Date: 20100216
  Transmission Date: 20100710
  Serious: Yes (Other)
  Sender: FDA-Public Use
  Company Number: None

PATIENT
  Sex: Female

DRUGS (2)
  1. FENTANYL [Suspect]
     Indication: PAIN
     Dosage: 50 MCG/H Q 48 H TOP
     Route: 061
     Dates: start: 20100123, end: 20100211
  2. FENTANYL [Suspect]

REACTIONS (4)
  - DRUG WITHDRAWAL SYNDROME [None]
  - PRODUCT ADHESION ISSUE [None]
  - PRODUCT QUALITY ISSUE [None]
  - RASH [None]
